FAERS Safety Report 14745273 (Version 3)
Quarter: 2018Q2

REPORT INFORMATION
  Report Type: Spontaneous
  Country: JP (occurrence: JP)
  Receive Date: 20180411
  Receipt Date: 20180612
  Transmission Date: 20180711
  Serious: Yes (Death, Other)
  Sender: FDA-Public Use
  Company Number: JP-ROCHE-2102908

PATIENT
  Age: 86 Year
  Sex: Male
  Weight: 60 kg

DRUGS (13)
  1. TAZOPIPE [Concomitant]
     Active Substance: PIPERACILLIN SODIUM\TAZOBACTAM SODIUM
     Indication: PNEUMONIA
     Route: 041
     Dates: start: 20180225, end: 20180226
  2. ALBUMIN [Concomitant]
     Active Substance: ALBUMIN HUMAN
     Indication: PLEURAL EFFUSION
     Route: 065
     Dates: start: 20180226, end: 20180302
  3. POLYGLOBIN [Concomitant]
     Active Substance: HUMAN IMMUNOGLOBULIN G
     Indication: INFECTION
     Route: 065
     Dates: start: 20180226, end: 20180228
  4. VANCOMYCIN [Concomitant]
     Active Substance: VANCOMYCIN
     Indication: PNEUMONIA
     Route: 065
     Dates: start: 20180226, end: 20180305
  5. LASIX [Concomitant]
     Active Substance: FUROSEMIDE
     Route: 065
     Dates: start: 20180226, end: 20180303
  6. MEROPENEM. [Concomitant]
     Active Substance: MEROPENEM
     Indication: PNEUMONIA
     Route: 065
     Dates: start: 20180226, end: 20180304
  7. PREDNISOLONE. [Concomitant]
     Active Substance: PREDNISOLONE
     Indication: EOSINOPHILIC PNEUMONIA
     Route: 048
     Dates: start: 20180207, end: 20180305
  8. OMEPRAL [Concomitant]
     Active Substance: OMEPRAZOLE
     Route: 065
     Dates: start: 20180226, end: 20180304
  9. ACELIO [Concomitant]
     Active Substance: ACETAMINOPHEN
     Indication: PYREXIA
     Route: 065
     Dates: start: 20180225, end: 20180226
  10. MEYLON (JAPAN) [Concomitant]
     Route: 065
     Dates: start: 20180227, end: 20180227
  11. DENOSINE (JAPAN) [Suspect]
     Active Substance: GANCICLOVIR
     Indication: CYTOMEGALOVIRUS ENTEROCOLITIS
     Route: 041
     Dates: start: 20180225, end: 20180227
  12. PREDNISOLONE SODIUM SUCCINATE [Concomitant]
     Active Substance: PREDNISOLONE SODIUM SUCCINATE
     Indication: EOSINOPHILIC PNEUMONIA
     Route: 041
     Dates: start: 20180207, end: 20180305
  13. FOSCAVIR [Concomitant]
     Active Substance: FOSCARNET SODIUM
     Route: 065
     Dates: start: 20180303

REACTIONS (1)
  - Platelet count decreased [Not Recovered/Not Resolved]

NARRATIVE: CASE EVENT DATE: 20180227
